FAERS Safety Report 6357833-4 (Version None)
Quarter: 2009Q3

REPORT INFORMATION
  Report Type: 
  Country: None (occurrence: None)
  Receive Date: 20090916
  Receipt Date: 20090911
  Transmission Date: 20100115
  Serious: Yes (Death, Hospitalization)
  Sender: FDA-Public Use
  Company Number: PHEH2009US10571

PATIENT
  Sex: Male

DRUGS (9)
  1. TASIGNA [Suspect]
     Indication: CHRONIC MYELOID LEUKAEMIA
     Dosage: 400 MG, BID
     Route: 048
     Dates: start: 20090822, end: 20090901
  2. METOPROLOL TARTRATE [Concomitant]
     Dosage: 100 MG, BID
     Dates: start: 20090821
  3. ALLOPURINOL [Concomitant]
     Dosage: 100 MG, QD
  4. FUROSEMIDE [Concomitant]
     Dosage: 40 MG, TID
  5. VITAMIN D [Concomitant]
     Dosage: 50000 U, QW
  6. IRON [Concomitant]
     Dosage: 325 MG, QD
  7. ASPIRIN [Concomitant]
     Dosage: 81 MG, QD
  8. ALBUTEROL [Concomitant]
     Dosage: 2 INHALATIONS Q6H PRN
  9. SYMBICORT [Concomitant]
     Dosage: UNK

REACTIONS (6)
  - CARDIAC FAILURE [None]
  - CONDITION AGGRAVATED [None]
  - FLUID OVERLOAD [None]
  - GENERAL PHYSICAL HEALTH DETERIORATION [None]
  - RENAL FAILURE [None]
  - RESPIRATORY ARREST [None]
